FAERS Safety Report 19706280 (Version 1)
Quarter: 2021Q3

REPORT INFORMATION
  Report Type: Spontaneous
  Country: CA (occurrence: CA)
  Receive Date: 20210817
  Receipt Date: 20210817
  Transmission Date: 20211014
  Serious: Yes (Disabling)
  Sender: FDA-Public Use
  Company Number: CA-009507513-2108CAN003297

PATIENT
  Age: 61 Year
  Sex: Female

DRUGS (1)
  1. KEYTRUDA [Suspect]
     Active Substance: PEMBROLIZUMAB
     Dosage: 4 ML SINGLE USE VIAL
     Route: 042

REACTIONS (3)
  - Pemphigoid [Recovered/Resolved]
  - Skin toxicity [Recovered/Resolved]
  - Autoimmune dermatitis [Recovered/Resolved]
